FAERS Safety Report 19515763 (Version 1)
Quarter: 2021Q3

REPORT INFORMATION
  Report Type: Spontaneous
  Country: US (occurrence: US)
  Receive Date: 20210709
  Receipt Date: 20210709
  Transmission Date: 20211014
  Serious: Yes (Other)
  Sender: FDA-Public Use
  Company Number: US-ASTELLAS-2020US031842

PATIENT
  Sex: Female

DRUGS (1)
  1. MYRBETRIQ [Suspect]
     Active Substance: MIRABEGRON
     Indication: PRODUCT USED FOR UNKNOWN INDICATION
     Route: 065
     Dates: start: 202009

REACTIONS (7)
  - Glaucoma [Unknown]
  - Nasal congestion [Unknown]
  - Headache [Unknown]
  - Pruritus [Unknown]
  - Dizziness [Unknown]
  - Nasal discomfort [Unknown]
  - Constipation [Unknown]
